FAERS Safety Report 8203251-3 (Version None)
Quarter: 2012Q1

REPORT INFORMATION
  Report Type: 
  Country: None (occurrence: None)
  Receive Date: 20120312
  Receipt Date: 20120308
  Transmission Date: 20120608
  Serious: Yes (Death)
  Sender: FDA-Public Use
  Company Number: FI-ROCHE-1044222

PATIENT
  Sex: Male

DRUGS (7)
  1. NEORECORMON [Concomitant]
     Indication: ANAEMIA
     Route: 058
     Dates: start: 20120203
  2. PEGASYS [Suspect]
     Indication: HEPATITIS C
     Route: 058
     Dates: start: 20111209
  3. BISOPROLOL FUMARATE [Concomitant]
     Indication: PRODUCT USED FOR UNKNOWN INDICATION
     Route: 048
  4. COPEGUS [Suspect]
     Indication: HEPATITIS C
     Route: 048
     Dates: start: 20111209, end: 20120119
  5. CLOZAPINE [Concomitant]
     Indication: SCHIZOPHRENIA
     Route: 048
  6. SEROQUEL [Concomitant]
     Indication: SCHIZOPHRENIA
     Route: 048
  7. COPEGUS [Suspect]
     Route: 048
     Dates: start: 20120120

REACTIONS (2)
  - ANAEMIA [None]
  - DEATH [None]
